FAERS Safety Report 4415910-9 (Version None)
Quarter: 2004Q3

REPORT INFORMATION
  Report Type: 
  Country: None (occurrence: None)
  Receive Date: 20040805
  Receipt Date: 20040528
  Transmission Date: 20050211
  Serious: No
  Sender: FDA-Public Use
  Company Number: US-GLAXOSMITHKLINE-A0512620A

PATIENT
  Age: 33 Year
  Sex: Male

DRUGS (2)
  1. AVANDAMET [Suspect]
     Dosage: 1TAB TWICE PER DAY
     Route: 048
  2. DOXYCYCLINE [Concomitant]

REACTIONS (7)
  - BLOOD GLUCOSE INCREASED [None]
  - FLATULENCE [None]
  - FUNGAL INFECTION [None]
  - LETHARGY [None]
  - PARAESTHESIA [None]
  - PHOTOPHOBIA [None]
  - SKIN CHAPPED [None]
